FAERS Safety Report 13349575 (Version 1)
Quarter: 2017Q1

REPORT INFORMATION
  Report Type: Spontaneous
  Country: HR (occurrence: HR)
  Receive Date: 20170320
  Receipt Date: 20170320
  Transmission Date: 20170428
  Serious: Yes (Other)
  Sender: FDA-Public Use
  Company Number: PHHY2017HR037951

PATIENT
  Age: 61 Year
  Sex: Female

DRUGS (2)
  1. SOMATOSTATIN [Concomitant]
     Active Substance: SOMATOSTATIN
     Indication: PRODUCT USED FOR UNKNOWN INDICATION
     Dosage: 20 MG, UNK
     Route: 030
  2. AFINITOR [Suspect]
     Active Substance: EVEROLIMUS
     Indication: NEUROENDOCRINE TUMOUR
     Dosage: 10 MG, QD
     Route: 048
     Dates: start: 20121228

REACTIONS (14)
  - Blood glucose increased [Unknown]
  - Blood pressure increased [Unknown]
  - Blood cholesterol increased [Unknown]
  - Ascites [Unknown]
  - Hepatic enzyme increased [Unknown]
  - Herpes zoster [Unknown]
  - Subileus [Unknown]
  - Dysgeusia [Unknown]
  - Oedema peripheral [Unknown]
  - Blood magnesium decreased [Unknown]
  - Blood triglycerides increased [Unknown]
  - Stomatitis [Unknown]
  - Metastases to ovary [Unknown]
  - Blood potassium decreased [Unknown]

NARRATIVE: CASE EVENT DATE: 201409
